FAERS Safety Report 17584004 (Version 1)
Quarter: 2020Q1

REPORT INFORMATION
  Report Type: Report from Study
  Country: JP (occurrence: JP)
  Receive Date: 20200326
  Receipt Date: 20200326
  Transmission Date: 20200409
  Serious: Yes (Death, Other)
  Sender: FDA-Public Use
  Company Number: JP-GLAXOSMITHKLINE-JP2018JPN206693

PATIENT
  Age: 8 Decade
  Sex: Female

DRUGS (27)
  1. VENETLIN INHALATION [Concomitant]
     Dosage: UNK
     Dates: start: 20180102
  2. METHYLPREDNISOLONE. [Concomitant]
     Active Substance: METHYLPREDNISOLONE
     Indication: ASTHMA
     Dosage: UNK
  3. VENETLIN INHALATION [Concomitant]
     Dosage: UNK
     Dates: start: 20180311
  4. XYZAL [Concomitant]
     Active Substance: LEVOCETIRIZINE DIHYDROCHLORIDE
     Indication: ASTHMA
     Dosage: UNK
  5. MEPOLIZUMAB [Suspect]
     Active Substance: MEPOLIZUMAB
     Dosage: 100 MG, QD
     Route: 058
     Dates: start: 20180320, end: 20180320
  6. SPIRIVA RESPIMAT [Concomitant]
     Active Substance: TIOTROPIUM BROMIDE
     Indication: ASTHMA
     Dosage: 5 ?G, 1D
  7. PREDNISOLONE. [Concomitant]
     Active Substance: PREDNISOLONE
     Indication: ASTHMA
     Dosage: 7.5 MG, 1D
  8. MONTELUKAST OD [Concomitant]
     Indication: ASTHMA
     Dosage: UNK
  9. AZILVA [Concomitant]
     Active Substance: AZILSARTAN KAMEDOXOMIL
     Dosage: UNK
  10. EQUA [Concomitant]
     Active Substance: VILDAGLIPTIN
     Dosage: UNK
  11. METHYLPREDNISOLONE. [Concomitant]
     Active Substance: METHYLPREDNISOLONE
     Dosage: UNK
     Dates: start: 20180311
  12. NEOPHYLLIN (JAPAN) [Concomitant]
     Indication: ASTHMA
     Dosage: UNK
     Dates: start: 20180210
  13. MEPOLIZUMAB [Suspect]
     Active Substance: MEPOLIZUMAB
     Dosage: 100 MG, QD
     Route: 058
     Dates: start: 20180123, end: 20180123
  14. PULMICORT TURBUHALER [Concomitant]
     Active Substance: BUDESONIDE
     Indication: ASTHMA
     Dosage: 800 ?G, 1D
  15. BAKTAR COMBINATION GRANULES [Concomitant]
     Indication: PROPHYLAXIS
     Dosage: UNK
  16. MEPOLIZUMAB [Suspect]
     Active Substance: MEPOLIZUMAB
     Dosage: 100 MG, QD
     Route: 058
     Dates: start: 20180220, end: 20180220
  17. KALLIDINOGENASE [Concomitant]
     Active Substance: KALLIDINOGENASE
     Dosage: UNK
  18. LANSOPRAZOLE-OD TABLETS [Concomitant]
     Indication: PROPHYLAXIS
     Dosage: UNK
  19. NEOPHYLLIN (JAPAN) [Concomitant]
     Indication: ASTHMA
     Dosage: UNK
     Dates: start: 20180311
  20. VENETLIN INHALATION [Concomitant]
     Dosage: UNK
     Dates: start: 20180210
  21. ALENDRONATE TABLETS [Concomitant]
     Dosage: UNK
  22. NIFEDIPINE. [Concomitant]
     Active Substance: NIFEDIPINE
     Dosage: UNK
  23. METHYLPREDNISOLONE. [Concomitant]
     Active Substance: METHYLPREDNISOLONE
     Dosage: UNK
     Dates: start: 20180210
  24. MEPOLIZUMAB [Suspect]
     Active Substance: MEPOLIZUMAB
     Indication: ASTHMA
     Dosage: 100 MG, QD
     Route: 058
     Dates: start: 20171226, end: 20171226
  25. GOREISAN [Concomitant]
     Active Substance: HERBALS
     Indication: PROPHYLAXIS
     Dosage: UNK
  26. CARBOCISTEINE [Concomitant]
     Active Substance: CARBOCYSTEINE
     Indication: ASTHMA
     Dosage: UNK
  27. VENETLIN INHALATION [Concomitant]
     Indication: ASTHMA
     Dosage: UNK

REACTIONS (7)
  - Conjunctivitis allergic [Recovering/Resolving]
  - Asthma [Recovering/Resolving]
  - Gastric cancer [Fatal]
  - Rhinitis allergic [Recovering/Resolving]
  - Asthma [Recovering/Resolving]
  - Asthma [Recovering/Resolving]
  - Otorrhoea [Recovered/Resolved]

NARRATIVE: CASE EVENT DATE: 20180102
